FAERS Safety Report 18608611 (Version 2)
Quarter: 2020Q4

REPORT INFORMATION
  Report Type: Spontaneous
  Country: US (occurrence: US)
  Receive Date: 20201213
  Receipt Date: 20201223
  Transmission Date: 20210114
  Serious: Yes (Hospitalization)
  Sender: FDA-Public Use
  Company Number: US-ENDO PHARMACEUTICALS INC-2020-007671

PATIENT
  Age: 38 Year
  Sex: Male

DRUGS (4)
  1. KETALAR [Suspect]
     Active Substance: KETAMINE HYDROCHLORIDE
     Indication: ANALGESIC THERAPY
     Dosage: 2.5 UG/KG/MIN, INFUSION
     Route: 042
  2. ACETAMINOPHEN. [Concomitant]
     Active Substance: ACETAMINOPHEN
     Indication: ANALGESIC THERAPY
  3. KETALAR [Suspect]
     Active Substance: KETAMINE HYDROCHLORIDE
     Dosage: TITRATED DOWN TO 1.7 UG/KG/MIN, INFUSION
     Route: 042
  4. KETOROLAC ACID [Concomitant]
     Indication: ANALGESIC THERAPY

REACTIONS (5)
  - Mental status changes postoperative [Recovering/Resolving]
  - Somnolence [Recovering/Resolving]
  - Atelectasis [Not Recovered/Not Resolved]
  - Off label use [Unknown]
  - Disorientation [Recovering/Resolving]
